FAERS Safety Report 24993133 (Version 2)
Quarter: 2025Q1

REPORT INFORMATION
  Report Type: Spontaneous
  Country: US (occurrence: US)
  Receive Date: 20250221
  Receipt Date: 20250228
  Transmission Date: 20250408
  Serious: No
  Sender: Harrow Health
  Company Number: US-IMP-2025000130

PATIENT
  Age: 84 Year
  Sex: Female

DRUGS (1)
  1. VEVYE [Suspect]
     Active Substance: CYCLOSPORINE
     Indication: Neovascular age-related macular degeneration
     Route: 047
     Dates: start: 202412, end: 202501

REACTIONS (3)
  - Eye pain [Unknown]
  - Ocular discomfort [Unknown]
  - Drug ineffective for unapproved indication [Unknown]
